FAERS Safety Report 6161162-1 (Version None)
Quarter: 2009Q2

REPORT INFORMATION
  Report Type: 
  Country: None (occurrence: None)
  Receive Date: 20090417
  Receipt Date: 20090417
  Transmission Date: 20091009
  Serious: Yes (Life-Threatening)
  Sender: FDA-Public Use
  Company Number: None

PATIENT
  Sex: Female
  Weight: 55.3388 kg

DRUGS (2)
  1. YAZ [Suspect]
     Indication: MENOPAUSAL DISORDER
     Dosage: 1 TABLET ONCE DAILY MOUTH ORAL
     Route: 048
     Dates: start: 20080501, end: 20081101
  2. YAZ [Suspect]
     Indication: MIGRAINE
     Dosage: 1 TABLET ONCE DAILY MOUTH ORAL
     Route: 048
     Dates: start: 20080501, end: 20081101

REACTIONS (5)
  - CONDITION AGGRAVATED [None]
  - DIARRHOEA [None]
  - FOOD ALLERGY [None]
  - HEPATIC PAIN [None]
  - WEIGHT DECREASED [None]
